FAERS Safety Report 8773276 (Version 1)
Quarter: 2012Q4

REPORT INFORMATION
  Report Type: 
  Country: US (occurrence: US)
  Receive Date: 20120907
  Receipt Date: 20120907
  Transmission Date: 20130627
  Serious: No
  Sender: FDA-Public Use
  Company Number: US-VERTEX PHARMACEUTICAL INC.-2012-020320

PATIENT
  Age: 59 Year
  Sex: Female

DRUGS (3)
  1. VX-950 [Suspect]
     Indication: HEPATITIS C
     Dosage: UNK
     Route: 048
     Dates: start: 20120615
  2. RIBAVIRIN [Concomitant]
     Indication: HEPATITIS C
     Dosage: UNK
     Dates: start: 20120615
  3. PEG-INTRON [Concomitant]
     Indication: HEPATITIS C
     Dosage: UNK
     Dates: start: 20120615

REACTIONS (1)
  - Rash papular [Not Recovered/Not Resolved]
